FAERS Safety Report 20845462 (Version 1)
Quarter: 2022Q2

REPORT INFORMATION
  Report Type: Spontaneous
  Country: DE (occurrence: DE)
  Receive Date: 20220518
  Receipt Date: 20220518
  Transmission Date: 20220721
  Serious: Yes (Hospitalization, Other)
  Sender: FDA-Public Use
  Company Number: None

PATIENT
  Sex: Male

DRUGS (2)
  1. CYTOTEC [Suspect]
     Active Substance: MISOPROSTOL
     Indication: Labour induction
     Dosage: 10:00 HALF TABLET, 14:00 WHOLE TABLET
     Route: 064
     Dates: start: 20160813, end: 20160813
  2. CYTOTEC [Suspect]
     Active Substance: MISOPROSTOL
     Indication: Pre-eclampsia

REACTIONS (6)
  - Foetal exposure during delivery [Recovered/Resolved]
  - Neonatal aspiration [Recovered/Resolved]
  - Cyanosis neonatal [Recovered/Resolved]
  - Neonatal respiratory distress [Recovered/Resolved]
  - Foetal heart rate abnormal [Recovered/Resolved]
  - Hypotonia [Recovered/Resolved]

NARRATIVE: CASE EVENT DATE: 20160801
